FAERS Safety Report 15592869 (Version 2)
Quarter: 2018Q4

REPORT INFORMATION
  Report Type: Spontaneous
  Country: CH (occurrence: CH)
  Receive Date: 20181107
  Receipt Date: 20181107
  Transmission Date: 20190205
  Serious: Yes (Hospitalization)
  Sender: FDA-Public Use
  Company Number: CH-TEVA-2018-CH-972481

PATIENT
  Age: 79 Year
  Sex: Female
  Weight: 62 kg

DRUGS (3)
  1. OLFEN [Suspect]
     Active Substance: DICLOFENAC SODIUM
     Indication: ANALGESIC THERAPY
     Route: 048
     Dates: end: 20181009
  2. MEMANTINE. [Suspect]
     Active Substance: MEMANTINE
     Indication: DEMENTIA ALZHEIMER^S TYPE
     Dosage: 10 MILLIGRAM DAILY;
     Route: 048
     Dates: start: 201806, end: 20181009
  3. DAFALGAN [Suspect]
     Active Substance: ACETAMINOPHEN
     Indication: ANALGESIC THERAPY
     Route: 048
     Dates: end: 20181009

REACTIONS (4)
  - Liver disorder [Recovering/Resolving]
  - Eosinophilia [Recovered/Resolved]
  - Drug reaction with eosinophilia and systemic symptoms [Recovered/Resolved]
  - Acute kidney injury [Recovering/Resolving]

NARRATIVE: CASE EVENT DATE: 20181009
